FAERS Safety Report 6180769-9 (Version None)
Quarter: 2009Q2

REPORT INFORMATION
  Report Type: 
  Country: None (occurrence: None)
  Receive Date: 20090506
  Receipt Date: 20081027
  Transmission Date: 20091009
  Serious: No
  Sender: FDA-Public Use
  Company Number: A0753872A

PATIENT
  Age: 5 Year
  Sex: Female

DRUGS (3)
  1. AMOXIL [Suspect]
     Indication: EAR INFECTION
     Route: 048
     Dates: start: 20060101, end: 20060101
  2. INSULIN [Concomitant]
  3. TOPAMAX [Concomitant]

REACTIONS (1)
  - URTICARIA [None]
